FAERS Safety Report 8448021-6 (Version None)
Quarter: 2012Q2

REPORT INFORMATION
  Report Type: 
  Country: None (occurrence: None)
  Receive Date: 20120619
  Receipt Date: 20120612
  Transmission Date: 20120825
  Serious: Yes (Disabling)
  Sender: FDA-Public Use
  Company Number: FI-UCBSA-059524

PATIENT
  Age: 41 Year
  Sex: Female

DRUGS (3)
  1. XYZAL [Suspect]
     Indication: SEASONAL ALLERGY
     Route: 048
     Dates: start: 20120521, end: 20120603
  2. DIANE NOVA [Concomitant]
     Indication: ACNE
     Route: 048
     Dates: start: 20020101
  3. DIANE NOVA [Concomitant]
     Indication: CONTRACEPTION
     Route: 048
     Dates: start: 20020101

REACTIONS (6)
  - BLISTER [None]
  - PRURITUS [None]
  - SWELLING [None]
  - SKIN IRRITATION [None]
  - ERYTHEMA [None]
  - DRY SKIN [None]
